FAERS Safety Report 7746700 (Version 2)
Quarter: 2017Q3

REPORT INFORMATION
  Report Type: Spontaneous
  Country: SI (occurrence: SI)
  Receive Date: 20110103
  Receipt Date: 20170901
  Transmission Date: 20171128
  Serious: Yes (Other)
  Sender: FDA-Public Use
  Company Number: SI-TEVA-261414ISR

PATIENT
  Age: 77 Year
  Sex: Male

DRUGS (3)
  1. CISPLATIN. [Suspect]
     Active Substance: CISPLATIN
     Indication: BLADDER CANCER
     Dates: start: 200905
  2. GEMCITABINE [Suspect]
     Active Substance: GEMCITABINE\GEMCITABINE HYDROCHLORIDE
     Indication: BLADDER CANCER
     Dosage: 47.619 MG/M2 DAILY;
     Dates: start: 200905, end: 200908
  3. GEMCITABINE [Suspect]
     Active Substance: GEMCITABINE\GEMCITABINE HYDROCHLORIDE
     Dates: start: 200905, end: 200908

REACTIONS (2)
  - Peripheral arterial occlusive disease [Recovering/Resolving]
  - Necrosis ischaemic [Recovering/Resolving]

NARRATIVE: CASE EVENT DATE: 20090808
